FAERS Safety Report 5536157-9 (Version None)
Quarter: 2007Q4

REPORT INFORMATION
  Report Type: 
  Country: None (occurrence: None)
  Receive Date: 20071120
  Receipt Date: 20070914
  Transmission Date: 20080405
  Serious: No
  Sender: FDA-Public Use
  Company Number: WAES 0709USA02186

PATIENT
  Age: 75 Year
  Sex: Female

DRUGS (1)
  1. JANUVIA [Suspect]
     Dosage: 50 MG DAILY PO, PO
     Route: 048

REACTIONS (2)
  - BLOOD CREATININE INCREASED [None]
  - WRONG TECHNIQUE IN DRUG USAGE PROCESS [None]
